FAERS Safety Report 4341893-6 (Version None)
Quarter: 2004Q2

REPORT INFORMATION
  Report Type: 
  Country: None (occurrence: None)
  Receive Date: 20040415
  Receipt Date: 20040329
  Transmission Date: 20050107
  Serious: Yes (Other)
  Sender: FDA-Public Use
  Company Number: USA040363449

PATIENT
  Age: 47 Year
  Sex: Female

DRUGS (1)
  1. PROZAC WEEKLY [Suspect]
     Indication: DEPRESSION
     Dosage: 90 MG / 2 WEEK
     Dates: start: 20000101, end: 20040316

REACTIONS (4)
  - DYSGEUSIA [None]
  - GASTRIC BYPASS [None]
  - MALABSORPTION [None]
  - PRESCRIBED OVERDOSE [None]
